FAERS Safety Report 14680689 (Version 1)
Quarter: 2018Q1

REPORT INFORMATION
  Report Type: Spontaneous
  Country: CA (occurrence: CA)
  Receive Date: 20180326
  Receipt Date: 20180326
  Transmission Date: 20180509
  Serious: Yes (Hospitalization)
  Sender: FDA-Public Use
  Company Number: CA-PFIZER INC-2017511893

PATIENT
  Age: 78 Year
  Sex: Female

DRUGS (9)
  1. CORTEF [Suspect]
     Active Substance: HYDROCORTISONE
     Dosage: 10 MG, DAILY IN AM
     Route: 048
     Dates: start: 20171226
  2. ASPIRIN /00002701/ [Concomitant]
     Active Substance: ASPIRIN
     Indication: THROMBOSIS
     Dosage: 80 MG, OD (1X/DAY)
     Route: 048
     Dates: start: 1995
  3. SYNTHROID [Suspect]
     Active Substance: LEVOTHYROXINE SODIUM
     Dosage: 0.1 MG, DAILY
     Route: 048
  4. CORTEF [Suspect]
     Active Substance: HYDROCORTISONE
     Dosage: UNK
     Route: 048
  5. VITAMIN B12 [Concomitant]
     Active Substance: CYANOCOBALAMIN
     Dosage: 1200 MG, DAILY
     Route: 048
  6. CALCIUM/VITAMIN D /01204201/ [Concomitant]
     Active Substance: CALCIUM CARBONATE\ERGOCALCIFEROL
     Dosage: 500 MG/800 UNITS, DAILY
     Route: 048
  7. CORTEF [Suspect]
     Active Substance: HYDROCORTISONE
     Indication: BLOOD PRESSURE ABNORMAL
     Dosage: 10 MG AM, 2.5 MG PM
     Route: 048
     Dates: start: 2012, end: 20171225
  8. SIMVASTATIN. [Concomitant]
     Active Substance: SIMVASTATIN
     Dosage: 40 MG, DAILY
     Route: 048
  9. ACETAMINOPHEN. [Concomitant]
     Active Substance: ACETAMINOPHEN
     Indication: HEADACHE
     Dosage: 1000 MG, EVERY 6 HRS PRN (AS NEEDED)
     Route: 048

REACTIONS (10)
  - Influenza [Recovered/Resolved]
  - Urinary tract infection [Unknown]
  - Fatigue [Unknown]
  - Nasopharyngitis [Unknown]
  - Pyrexia [Unknown]
  - Kidney infection [Unknown]
  - Lung infection [Unknown]
  - Escherichia infection [Unknown]
  - Blood pressure systolic increased [Recovered/Resolved]
  - Cough [Unknown]

NARRATIVE: CASE EVENT DATE: 2017
